FAERS Safety Report 19371453 (Version 1)
Quarter: 2021Q2

REPORT INFORMATION
  Report Type: Spontaneous
  Country: US (occurrence: US)
  Receive Date: 20210603
  Receipt Date: 20210603
  Transmission Date: 20210717
  Serious: No
  Sender: FDA-Public Use
  Company Number: US-ASTRAZENECA-2021A408205

PATIENT
  Age: 26573 Day
  Sex: Female
  Weight: 52.2 kg

DRUGS (2)
  1. FASLODEX [Suspect]
     Active Substance: FULVESTRANT
     Indication: BREAST CANCER METASTATIC
     Route: 030
     Dates: start: 2017
  2. VERZENIO [Concomitant]
     Active Substance: ABEMACICLIB
     Indication: BREAST CANCER METASTATIC
     Dosage: 100 MG TAB IN THE MORNING AND EVENING, AND RECENTLY IN THE LAST 5 MONTHS, SHE HAS BEEN TAKING 150...
     Route: 048
     Dates: start: 2017

REACTIONS (14)
  - Pain [Recovered/Resolved]
  - Injection site reaction [Unknown]
  - Respiration abnormal [Unknown]
  - Asthma [Unknown]
  - Product administered at inappropriate site [Unknown]
  - Gait inability [Recovered/Resolved]
  - Ill-defined disorder [Unknown]
  - Musculoskeletal pain [Recovered/Resolved]
  - Arthralgia [Recovered/Resolved]
  - Pain in extremity [Recovered/Resolved]
  - Gait disturbance [Unknown]
  - Neck pain [Unknown]
  - Burning sensation [Unknown]
  - Wheezing [Unknown]

NARRATIVE: CASE EVENT DATE: 202104
